FAERS Safety Report 19017453 (Version 1)
Quarter: 2021Q1

REPORT INFORMATION
  Report Type: Report from Study
  Country: GB (occurrence: GB)
  Receive Date: 20210317
  Receipt Date: 20210317
  Transmission Date: 20210420
  Serious: Yes (Other)
  Sender: FDA-Public Use
  Company Number: GB-EVUS PHARMACEUTICALS, LLC-EPL202103-000021

PATIENT
  Age: 40 Year
  Sex: Male

DRUGS (1)
  1. NITROGLYCERIN. [Suspect]
     Active Substance: NITROGLYCERIN
     Indication: CLUSTER HEADACHE
     Dosage: 0.5 MCG/KG/MIN (OVER 20 MINUTES)
     Route: 042

REACTIONS (9)
  - Cluster headache [Unknown]
  - Product use in unapproved indication [Unknown]
  - Conjunctival hyperaemia [Unknown]
  - Periorbital oedema [Unknown]
  - Ear congestion [Unknown]
  - Nasal congestion [Unknown]
  - Agitation [Unknown]
  - Facial paralysis [Unknown]
  - Lacrimation increased [Unknown]
